FAERS Safety Report 11012288 (Version 1)
Quarter: 2015Q2

REPORT INFORMATION
  Report Type: Spontaneous
  Country: US (occurrence: None)
  Receive Date: 20150410
  Receipt Date: 20150410
  Transmission Date: 20150821
  Serious: Yes (Other)
  Sender: FDA-Public Use
  Company Number: None

PATIENT
  Sex: Female

DRUGS (1)
  1. IBRANCE [Suspect]
     Active Substance: PALBOCICLIB
     Indication: BREAST CANCER
     Dosage: 125MG  DAILY X 21 DAYS, OFF 7  ORAL?DATES OF USE:  03-20-16 TO PRESENT
     Route: 048

REACTIONS (1)
  - White blood cell count decreased [None]
